FAERS Safety Report 19906773 (Version 2)
Quarter: 2022Q2

REPORT INFORMATION
  Report Type: Report from Study
  Country: GB (occurrence: GB)
  Receive Date: 20210930
  Receipt Date: 20220418
  Transmission Date: 20220720
  Serious: No
  Sender: FDA-Public Use
  Company Number: GB-ROCHE-2597649

PATIENT
  Age: 73 Year
  Sex: Female
  Weight: 46 kg

DRUGS (12)
  1. CARBOPLATIN [Suspect]
     Active Substance: CARBOPLATIN
     Indication: Small cell lung cancer extensive stage
     Dosage: 360 MG
     Route: 065
     Dates: start: 20191204
  2. ATEZOLIZUMAB [Suspect]
     Active Substance: ATEZOLIZUMAB
     Indication: Small cell lung cancer extensive stage
     Dosage: 1200 MG, EVERY 3 WEEKS, MOST RECENT PRIOR TO AE ONSET: 22JAN2020
     Route: 041
     Dates: start: 20191204
  3. ETOPOSIDE [Suspect]
     Active Substance: ETOPOSIDE
     Indication: Small cell lung cancer extensive stage
     Dosage: 148 MG
     Route: 065
     Dates: start: 20191204
  4. LEVOTHYROXINE [Suspect]
     Active Substance: LEVOTHYROXINE
     Route: 065
  5. LEVOTHYROXINE [Suspect]
     Active Substance: LEVOTHYROXINE
     Dosage: UNK
     Dates: start: 20191227
  6. LEVOTHYROXINE [Suspect]
     Active Substance: LEVOTHYROXINE
     Dosage: UNK
     Dates: start: 20200122
  7. CIPROFLOXACIN [Concomitant]
     Active Substance: CIPROFLOXACIN
     Indication: Prophylaxis
     Dosage: 1, MONTHLY
     Route: 065
     Dates: start: 20191204
  8. DEXAMETHASONE [Concomitant]
     Active Substance: DEXAMETHASONE
     Indication: Prophylaxis
     Dosage: 1, 2X/WEEK
     Route: 065
     Dates: start: 20191204
  9. DOMPERIDONE [Concomitant]
     Active Substance: DOMPERIDONE
     Indication: Prophylaxis
     Dosage: 1, 2X/WEEK
     Route: 065
     Dates: start: 20191204
  10. FILGRASTIM [Concomitant]
     Active Substance: FILGRASTIM
     Indication: Prophylaxis
     Dosage: 1, MONTHLY
     Route: 065
     Dates: start: 20191204
  11. MAGNESIUM GLYCEROPHOSPHATE [Concomitant]
     Active Substance: MAGNESIUM GLYCEROPHOSPHATE
     Indication: Prophylaxis
     Dosage: 2 DAILY
     Route: 065
     Dates: start: 20200210, end: 20200217
  12. ZOPICLONE [Concomitant]
     Active Substance: ZOPICLONE
     Indication: Prophylaxis
     Dosage: 1, AS NEEDED
     Route: 065
     Dates: start: 20200114

REACTIONS (3)
  - Thrombocytopenia [Recovered/Resolved]
  - Hypothyroidism [Not Recovered/Not Resolved]
  - Lower respiratory tract infection [Recovered/Resolved]

NARRATIVE: CASE EVENT DATE: 20200210
